FAERS Safety Report 9331949 (Version 1)
Quarter: 2013Q2

REPORT INFORMATION
  Report Type: Spontaneous
  Country: US (occurrence: US)
  Receive Date: 20130605
  Receipt Date: 20130605
  Transmission Date: 20140414
  Serious: Yes (Other)
  Sender: FDA-Public Use
  Company Number: CHPA2013US009212

PATIENT
  Age: 62 Year
  Sex: Female

DRUGS (2)
  1. GAS-X EXTSTR CHEWABLE TABS CHERRY CREME [Suspect]
     Indication: ABDOMINAL DISTENSION
     Dosage: 125 MG, PRN
     Route: 048
     Dates: start: 2002, end: 2010
  2. GAS-X CHEWABLE TABLETS PEPPERMINT CREME [Suspect]
     Indication: ABDOMINAL DISTENSION
     Dosage: UNK, UNK
     Route: 048

REACTIONS (1)
  - Hypersensitivity [Recovering/Resolving]
